FAERS Safety Report 5915988-7 (Version None)
Quarter: 2008Q4

REPORT INFORMATION
  Report Type: 
  Country: None (occurrence: None)
  Receive Date: 20081013
  Receipt Date: 20081002
  Transmission Date: 20090506
  Serious: Yes (Other)
  Sender: FDA-Public Use
  Company Number: US-JNJFOC-20081001590

PATIENT
  Age: 47 Year
  Sex: Male
  Weight: 99.79 kg

DRUGS (5)
  1. LEVAQUIN [Suspect]
     Indication: PHARYNGITIS
     Route: 048
  2. IBUPROFEN [Suspect]
     Indication: PAIN
     Route: 048
  3. CHEMOTHERAPY [Concomitant]
     Indication: NEOPLASM MALIGNANT
     Route: 065
  4. RADIATION [Concomitant]
     Indication: NEOPLASM MALIGNANT
     Route: 065
  5. HYDROCODONE BITARTRATE [Concomitant]
     Indication: PAIN
     Route: 048

REACTIONS (6)
  - ARTHRALGIA [None]
  - GASTRIC HAEMORRHAGE [None]
  - HAEMATOCHEZIA [None]
  - INAPPROPRIATE SCHEDULE OF DRUG ADMINISTRATION [None]
  - MUSCULOSKELETAL PAIN [None]
  - RASH GENERALISED [None]
